FAERS Safety Report 8785767 (Version 1)
Quarter: 2012Q4

REPORT INFORMATION
  Report Type: 
  Country: NO (occurrence: NO)
  Receive Date: 20120914
  Receipt Date: 20120914
  Transmission Date: 20130627
  Serious: Yes (Death)
  Sender: FDA-Public Use
  Company Number: NO-SANOFI-AVENTIS-2012SA063375

PATIENT
  Age: 61 Year
  Sex: Female

DRUGS (9)
  1. TAXOTERE [Suspect]
     Indication: BREAST CANCER
     Dosage: 190 mg given 20120523, 20120606, 20120620 and 20120704
     Route: 042
     Dates: start: 20120523
  2. TAXOTERE [Suspect]
     Indication: BREAST CANCER
     Dosage: 190 mg given 20120523, 20120606, 20120620 and 20120704
     Route: 042
     Dates: start: 20120606
  3. TAXOTERE [Suspect]
     Indication: BREAST CANCER
     Dosage: 190 mg given 20120523, 20120606, 20120620 and 20120704
     Route: 042
     Dates: start: 20120620
  4. TAXOTERE [Suspect]
     Indication: BREAST CANCER
     Dosage: 190 mg given 20120523, 20120606, 20120620 and 20120704
     Route: 042
     Dates: start: 20120704
  5. NEULASTA [Concomitant]
     Indication: BONE MARROW CONDITIONING REGIMEN
     Dosage: Administered the day after cytotoxic drug was given.
  6. EPIRUBICIN [Concomitant]
     Indication: BREAST CANCER
     Dosage: frequency: 1 every 14 days
     Route: 042
     Dates: start: 20120328
  7. EPIRUBICIN [Concomitant]
     Indication: BREAST CANCER
     Route: 042
     Dates: start: 20120411
  8. EPIRUBICIN [Concomitant]
     Indication: BREAST CANCER
     Route: 042
     Dates: start: 20120425
  9. EPIRUBICIN [Concomitant]
     Indication: BREAST CANCER
     Route: 042
     Dates: start: 20120509

REACTIONS (1)
  - Pneumonitis [Fatal]
